FAERS Safety Report 10258609 (Version 2)
Quarter: 2014Q3

REPORT INFORMATION
  Report Type: Spontaneous
  Country: FR (occurrence: FR)
  Receive Date: 20140625
  Receipt Date: 20140909
  Transmission Date: 20150326
  Serious: Yes (Hospitalization)
  Sender: FDA-Public Use
  Company Number: ALCN2014FR003610

PATIENT
  Age: 6 Year
  Sex: Male
  Weight: 19 kg

DRUGS (2)
  1. PILOCARPINE HCL [Suspect]
     Active Substance: PILOCARPINE HYDROCHLORIDE
     Dosage: 3 GTT, ONCE/SINGLE (WITHIN 1 HOUR)
     Route: 047
     Dates: start: 20140516, end: 20140516
  2. ATROPINE SULFATE. [Suspect]
     Active Substance: ATROPINE SULFATE
     Indication: OPHTHALMOLOGICAL EXAMINATION
     Dosage: UNK, NO TREATMENT
     Route: 047

REACTIONS (6)
  - Medication error [Recovered/Resolved]
  - Miosis [Not Recovered/Not Resolved]
  - Cough [Unknown]
  - Pallor [Recovered/Resolved]
  - Drug dispensing error [Recovered/Resolved]
  - Vomiting [Recovered/Resolved]

NARRATIVE: CASE EVENT DATE: 20140516
